FAERS Safety Report 13054077 (Version 1)
Quarter: 2016Q4

REPORT INFORMATION
  Report Type: Spontaneous
  Country: US (occurrence: US)
  Receive Date: 20161222
  Receipt Date: 20161222
  Transmission Date: 20170207
  Serious: Yes (Hospitalization)
  Sender: FDA-Public Use
  Company Number: US-ALLERGAN-1681731US

PATIENT
  Age: 83 Year
  Sex: Male

DRUGS (5)
  1. MEMANTINE HCL - BP [Suspect]
     Active Substance: MEMANTINE
     Indication: AGGRESSION
     Dosage: 10 MG, UNK
     Route: 048
  2. CITALOPRAM HYDROBROMIDE - BP [Suspect]
     Active Substance: CITALOPRAM HYDROBROMIDE
     Indication: AGGRESSION
     Dosage: 10 MG, UNK
     Route: 048
  3. RISPERIDONE. [Concomitant]
     Active Substance: RISPERIDONE
     Dosage: 2 MG, BID
  4. RISPERIDONE. [Concomitant]
     Active Substance: RISPERIDONE
     Indication: AGGRESSION
     Dosage: .5 MG, BID
  5. HALOPERIDOL. [Concomitant]
     Active Substance: HALOPERIDOL
     Indication: AGGRESSION
     Dosage: .5 MG, BID

REACTIONS (3)
  - Aggression [Not Recovered/Not Resolved]
  - Off label use [Unknown]
  - Agitation [Not Recovered/Not Resolved]
